FAERS Safety Report 5867280-7 (Version None)
Quarter: 2008Q3

REPORT INFORMATION
  Report Type: 
  Country: None (occurrence: None)
  Receive Date: 20080902
  Receipt Date: 20080828
  Transmission Date: 20090109
  Serious: Yes (Hospitalization)
  Sender: FDA-Public Use
  Company Number: JP-AVENTIS-200812193JP

PATIENT
  Age: 82 Year
  Sex: Female
  Weight: 61 kg

DRUGS (8)
  1. AMARYL [Suspect]
     Route: 048
     Dates: start: 20060331, end: 20060916
  2. ADALAT CC [Concomitant]
     Indication: HYPERTENSION
     Route: 048
     Dates: start: 19911105
  3. MICARDIS [Concomitant]
     Indication: HYPERTENSION
     Route: 048
     Dates: start: 20051217
  4. METFORMIN HCL [Concomitant]
     Route: 048
     Dates: start: 20060331
  5. LOXOT [Concomitant]
     Route: 048
     Dates: start: 20051217
  6. BEZATOL [Concomitant]
     Route: 048
     Dates: start: 20060331
  7. MARZULENE S [Concomitant]
     Indication: GASTRITIS
     Route: 048
     Dates: start: 20060331
  8. URONAVERINE [Concomitant]
     Indication: POLLAKIURIA
     Route: 048
     Dates: start: 20060331, end: 20070517

REACTIONS (1)
  - HYPOGLYCAEMIA UNAWARENESS [None]
